FAERS Safety Report 4975781-9 (Version None)
Quarter: 2006Q2

REPORT INFORMATION
  Report Type: 
  Country: None (occurrence: None)
  Receive Date: 20060418
  Receipt Date: 20060109
  Transmission Date: 20061013
  Serious: Yes (Other)
  Sender: FDA-Public Use
  Company Number: GB-BOEHRINGER INGELHEIM PHARMACEUTICALS, INC.-2006-UK-00062UK

PATIENT
  Sex: Female

DRUGS (2)
  1. PERSANTIN [Suspect]
     Indication: TRANSIENT ISCHAEMIC ATTACK
     Route: 048
     Dates: start: 20051103, end: 20051120
  2. MEDICINALPRODUCT NOT SPECIFIED BY SENDER [Concomitant]
     Indication: TRANSIENT ISCHAEMIC ATTACK

REACTIONS (7)
  - ABDOMINAL PAIN UPPER [None]
  - ANAEMIA [None]
  - DEHYDRATION [None]
  - DIARRHOEA [None]
  - PALLOR [None]
  - TONGUE DISORDER [None]
  - VOMITING [None]
